FAERS Safety Report 23444449 (Version 1)
Quarter: 2024Q1

REPORT INFORMATION
  Report Type: Spontaneous
  Country: TR (occurrence: TR)
  Receive Date: 20240125
  Receipt Date: 20240125
  Transmission Date: 20240410
  Serious: Yes (Other)
  Sender: FDA-Public Use
  Company Number: TR-CMP PHARMA-2024CMP00001

PATIENT
  Age: 7 Year
  Sex: Male

DRUGS (1)
  1. ISONIAZID [Suspect]
     Active Substance: ISONIAZID
     Indication: Antibiotic prophylaxis
     Dosage: 10 MG/KG, 1X/DAY

REACTIONS (2)
  - Aggression [Recovered/Resolved]
  - Irritability [Recovered/Resolved]
